FAERS Safety Report 10180412 (Version 1)
Quarter: 2014Q2

REPORT INFORMATION
  Report Type: Spontaneous
  Country: US (occurrence: US)
  Receive Date: 20140519
  Receipt Date: 20140519
  Transmission Date: 20141212
  Serious: No
  Sender: FDA-Public Use
  Company Number: US-AMGEN INC.-USASP2013088942

PATIENT
  Sex: Male

DRUGS (2)
  1. PROLIA [Suspect]
     Indication: BONE LOSS
     Dosage: UNK
     Route: 065
  2. FIRMAGON                           /01764801/ [Concomitant]
     Indication: PROSTATE CANCER
     Dosage: UNK UNK, QMO
     Route: 065

REACTIONS (1)
  - Inappropriate schedule of drug administration [Unknown]
